FAERS Safety Report 24608498 (Version 1)
Quarter: 2024Q4

REPORT INFORMATION
  Report Type: Spontaneous
  Country: US (occurrence: US)
  Receive Date: 20241112
  Receipt Date: 20241112
  Transmission Date: 20250115
  Serious: No
  Sender: MERCK
  Company Number: US-009507513-2411USA002797

PATIENT

DRUGS (5)
  1. TEMODAR [Suspect]
     Active Substance: TEMOZOLOMIDE
     Indication: Oligodendroglioma
     Dosage: UNK
     Route: 048
  2. PROCARBAZINE [Concomitant]
     Active Substance: PROCARBAZINE
     Indication: Oligodendroglioma
     Dosage: UNK
  3. LOMUSTINE [Concomitant]
     Active Substance: LOMUSTINE
     Indication: Oligodendroglioma
     Dosage: UNK
  4. CARMUSTINE [Concomitant]
     Active Substance: CARMUSTINE
     Indication: Oligodendroglioma
     Dosage: UNK
  5. VINCRISTINE [Concomitant]
     Active Substance: VINCRISTINE
     Indication: Oligodendroglioma
     Dosage: UNK

REACTIONS (1)
  - Off label use [Unknown]
